FAERS Safety Report 20447155 (Version 1)
Quarter: 2022Q1

REPORT INFORMATION
  Report Type: Spontaneous
  Country: US (occurrence: US)
  Receive Date: 20220209
  Receipt Date: 20220209
  Transmission Date: 20220424
  Serious: No
  Sender: FDA-Public Use
  Company Number: US-ELI_LILLY_AND_COMPANY-US202201011903

PATIENT
  Sex: Female

DRUGS (2)
  1. TRULICITY [Suspect]
     Active Substance: DULAGLUTIDE
     Indication: Diabetes mellitus
     Dosage: 1.5 MG, UNKNOWN
     Route: 058
     Dates: end: 202108
  2. MEDROL [Concomitant]
     Active Substance: METHYLPREDNISOLONE
     Indication: Complex regional pain syndrome

REACTIONS (2)
  - Paraesthesia [Unknown]
  - Weight increased [Unknown]
